FAERS Safety Report 7345319-X (Version None)
Quarter: 2011Q1

REPORT INFORMATION
  Report Type: 
  Country: None (occurrence: None)
  Receive Date: 20110310
  Receipt Date: 20110302
  Transmission Date: 20110831
  Serious: Yes (Other)
  Sender: FDA-Public Use
  Company Number: US-SANOFI-AVENTIS-2011SA014192

PATIENT
  Age: 61 Year
  Sex: Female

DRUGS (5)
  1. ATIVAN [Concomitant]
  2. LANTUS [Suspect]
     Indication: TYPE 2 DIABETES MELLITUS
     Dosage: DOSE:80 UNIT(S)
     Route: 058
     Dates: start: 20080101
  3. REGLAN [Concomitant]
  4. HUMULIN R [Concomitant]
  5. DEXAMETHASONE [Suspect]

REACTIONS (4)
  - BREAST CANCER [None]
  - HEADACHE [None]
  - BACK PAIN [None]
  - BLOOD GLUCOSE INCREASED [None]
